FAERS Safety Report 7705770-2 (Version None)
Quarter: 2011Q3

REPORT INFORMATION
  Report Type: 
  Country: None (occurrence: None)
  Receive Date: 20110824
  Receipt Date: 20110824
  Transmission Date: 20111222
  Serious: No
  Sender: FDA-Public Use
  Company Number: None

PATIENT
  Age: 66 Year
  Sex: Female
  Weight: 60.781 kg

DRUGS (1)
  1. CALCITONIN SALMON [Suspect]
     Indication: OSTEOPOROSIS POSTMENOPAUSAL
     Dosage: 200 I.U.PER  SPRAY
     Route: 045
     Dates: start: 20110804, end: 20110819

REACTIONS (4)
  - PRODUCT ODOUR ABNORMAL [None]
  - PRODUCT FORMULATION ISSUE [None]
  - HEADACHE [None]
  - PRODUCT SUBSTITUTION ISSUE [None]
